FAERS Safety Report 10652479 (Version 3)
Quarter: 2015Q4

REPORT INFORMATION
  Report Type: Spontaneous
  Country: US (occurrence: US)
  Receive Date: 20141215
  Receipt Date: 20151111
  Transmission Date: 20160304
  Serious: Yes (Death, Hospitalization, Other)
  Sender: FDA-Public Use
  Company Number: US-009507513-1412USA007272

PATIENT
  Sex: Male
  Weight: 86.17 kg

DRUGS (1)
  1. JANUVIA [Suspect]
     Active Substance: SITAGLIPTIN PHOSPHATE
     Indication: TYPE 2 DIABETES MELLITUS
     Dosage: 100 MG, QD
     Route: 048
     Dates: start: 20110912, end: 20120123

REACTIONS (25)
  - Metastases to liver [Unknown]
  - Hypercalcaemia of malignancy [Unknown]
  - Nephrolithiasis [Unknown]
  - Ventricular extrasystoles [Unknown]
  - Laceration [Unknown]
  - Arteriosclerosis coronary artery [Unknown]
  - Colectomy [Unknown]
  - Pyuria [Unknown]
  - Acute sinusitis [Unknown]
  - Diverticulum [Unknown]
  - Tendon rupture [Unknown]
  - Carpal tunnel syndrome [Unknown]
  - Dyspnoea [Unknown]
  - Rib fracture [Unknown]
  - Musculoskeletal chest pain [Unknown]
  - Proctitis [Unknown]
  - Pancreatic carcinoma metastatic [Fatal]
  - Atrial fibrillation [Not Recovered/Not Resolved]
  - Skin lesion [Unknown]
  - Infected bite [Unknown]
  - Gastrooesophageal reflux disease [Unknown]
  - Erectile dysfunction [Unknown]
  - International normalised ratio increased [Unknown]
  - Fibroma [Unknown]
  - Contusion [Unknown]

NARRATIVE: CASE EVENT DATE: 20120809
